FAERS Safety Report 11315845 (Version 3)
Quarter: 2015Q3

REPORT INFORMATION
  Report Type: Report from Study
  Country: US (occurrence: US)
  Receive Date: 20150728
  Receipt Date: 20150902
  Transmission Date: 20151125
  Serious: Yes (Other)
  Sender: FDA-Public Use
  Company Number: US-AMGEN-USASP2015074767

PATIENT
  Age: 51 Year
  Sex: Male

DRUGS (2)
  1. ENBREL [Suspect]
     Active Substance: ETANERCEPT
     Indication: RHEUMATOID ARTHRITIS
     Dosage: UNK
     Route: 065
     Dates: start: 2014
  2. SIMVASTATIN. [Suspect]
     Active Substance: SIMVASTATIN
     Indication: PRODUCT USED FOR UNKNOWN INDICATION
     Route: 065

REACTIONS (9)
  - Hepatic enzyme increased [Unknown]
  - Platelet count decreased [Unknown]
  - Eye operation [Not Recovered/Not Resolved]
  - Road traffic accident [Not Recovered/Not Resolved]
  - Arthralgia [Not Recovered/Not Resolved]
  - Retinal injury [Not Recovered/Not Resolved]
  - Ligament disorder [Not Recovered/Not Resolved]
  - Blood creatine phosphokinase increased [Unknown]
  - Osteoarthritis [Not Recovered/Not Resolved]

NARRATIVE: CASE EVENT DATE: 2014
